FAERS Safety Report 15849071 (Version 1)
Quarter: 2019Q1

REPORT INFORMATION
  Report Type: Other
  Country: GB (occurrence: GB)
  Receive Date: 20190121
  Receipt Date: 20190121
  Transmission Date: 20190417
  Serious: Yes (Life-Threatening, Other)
  Sender: FDA-Public Use
  Company Number: GB-HERITAGE PHARMACEUTICALS-2018HTG00372

PATIENT
  Sex: Male
  Weight: 122 kg

DRUGS (5)
  1. DAPSONE. [Suspect]
     Active Substance: DAPSONE
     Indication: HIV INFECTION
     Dosage: 1 TABLETS, 1X/DAY
  2. ACYCLOVIR. [Suspect]
     Active Substance: ACYCLOVIR
     Indication: ENCEPHALITIS VIRAL
     Dosage: 800 MG, 1X/DAY
     Route: 048
  3. RITONAVIR. [Suspect]
     Active Substance: RITONAVIR
     Indication: HIV INFECTION
     Dosage: 150 MG
     Route: 048
  4. LAMIVUDINE + ABACAVIR (DR REDDYS LABS) [Suspect]
     Active Substance: ABACAVIR\LAMIVUDINE
     Indication: HIV INFECTION
     Dosage: 600MG/300MG
     Route: 048
  5. COCODAMOL [Concomitant]
     Active Substance: ACETAMINOPHEN\CODEINE PHOSPHATE

REACTIONS (36)
  - Abnormal weight gain [Unknown]
  - Muscle spasms [Recovered/Resolved]
  - Libido decreased [Unknown]
  - Blood glucose increased [Unknown]
  - Muscular weakness [Recovered/Resolved]
  - Abnormal dreams [Unknown]
  - Nasal discomfort [Unknown]
  - Abnormal behaviour [Unknown]
  - Lipids increased [Unknown]
  - Pyrexia [Unknown]
  - Dyspnoea [Unknown]
  - Speech disorder [Unknown]
  - Chest pain [Recovered/Resolved]
  - Decreased appetite [Unknown]
  - Pain [Unknown]
  - Eye movement disorder [Unknown]
  - Ocular hyperaemia [Unknown]
  - Depression [Recovered/Resolved]
  - Skin sensitisation [Unknown]
  - Ear discomfort [Unknown]
  - Coordination abnormal [Unknown]
  - Skin irritation [Unknown]
  - Cough [Unknown]
  - Dry eye [Unknown]
  - Rash [Recovered/Resolved]
  - Paralysis [Unknown]
  - Hypertension [Recovered/Resolved]
  - Sleep disorder [Unknown]
  - Myalgia [Recovered/Resolved]
  - Photosensitivity reaction [Unknown]
  - Peripheral swelling [Unknown]
  - Erectile dysfunction [Unknown]
  - Balance disorder [Recovered/Resolved]
  - Musculoskeletal stiffness [Unknown]
  - Hypothyroidism [Recovered/Resolved]
  - Pruritus [Unknown]

NARRATIVE: CASE EVENT DATE: 20150101
